FAERS Safety Report 22202215 (Version 1)
Quarter: 2023Q2

REPORT INFORMATION
  Report Type: Spontaneous
  Country: FR (occurrence: FR)
  Receive Date: 20230412
  Receipt Date: 20230412
  Transmission Date: 20230722
  Serious: Yes (Hospitalization)
  Sender: FDA-Public Use
  Company Number: FR-AMERICAN REGENT INC-2023000868

PATIENT
  Age: 88 Year
  Sex: Male

DRUGS (10)
  1. FERINJECT [Suspect]
     Active Substance: FERRIC CARBOXYMALTOSE
     Indication: Product used for unknown indication
     Dosage: UNK
     Route: 042
     Dates: start: 20181119, end: 20181119
  2. DAPTOMYCIN [Concomitant]
     Active Substance: DAPTOMYCIN
     Indication: Endocarditis
     Dosage: 600 MILLIGRAM, 1 IN 1 D
     Route: 042
     Dates: start: 20181106, end: 20181115
  3. CLOXACILLIN SODIUM [Concomitant]
     Active Substance: CLOXACILLIN SODIUM
     Indication: Endocarditis
     Dosage: 12 GM (2 GRAM, 1 IN 4 HR)
     Route: 042
     Dates: start: 20181031, end: 20181101
  4. VANCOMYCIN [Concomitant]
     Active Substance: VANCOMYCIN
     Indication: Endocarditis
     Dosage: 1900 MILLIGRAM, 1 IN 24 HR
     Route: 042
     Dates: start: 20181102, end: 20181106
  5. DOLIPRANE [Concomitant]
     Active Substance: ACETAMINOPHEN
     Indication: Pain
     Dosage: 3 GRAM, 1 IN 1 DAY
     Route: 048
     Dates: start: 20181031
  6. TEICOPLANIN [Concomitant]
     Active Substance: TEICOPLANIN
     Indication: Endocarditis
     Dosage: 400 MILLIGRAM, 1 IN 1 D
     Route: 042
     Dates: start: 20181115
  7. GENTAMICIN [Concomitant]
     Active Substance: GENTAMICIN
     Indication: Endocarditis
     Dosage: 160 MILLIGRAM, 1 IN 1 D
     Route: 042
     Dates: start: 20181108, end: 20181108
  8. RIFAMPIN [Concomitant]
     Active Substance: RIFAMPIN
     Indication: Endocarditis
     Dosage: 2 DOSAGE FORM, 1 IN 1 D
     Route: 048
     Dates: start: 20181116
  9. WARFARIN SODIUM [Concomitant]
     Active Substance: WARFARIN SODIUM
     Indication: Cardiomyopathy
     Dosage: 1 DOSAGE FORM, 1 IN 1 D
     Route: 048
     Dates: start: 20181113
  10. CEFTAROLINE FOSAMIL [Concomitant]
     Active Substance: CEFTAROLINE FOSAMIL
     Indication: Endocarditis
     Dosage: 1200 MILLIGRAM, 1 IN 1 D
     Route: 042
     Dates: start: 20181110, end: 20181115

REACTIONS (1)
  - Vascular purpura [Recovered/Resolved]

NARRATIVE: CASE EVENT DATE: 20181122
